FAERS Safety Report 24804457 (Version 1)
Quarter: 2025Q1

REPORT INFORMATION
  Report Type: Spontaneous
  Country: US (occurrence: US)
  Receive Date: 20250103
  Receipt Date: 20250103
  Transmission Date: 20250408
  Serious: No
  Sender: MYLAN
  Company Number: US-MYLANLABS-2024M1117198

PATIENT
  Sex: Female

DRUGS (1)
  1. TRETINOIN [Suspect]
     Active Substance: TRETINOIN
     Indication: Product used for unknown indication
     Route: 065

REACTIONS (2)
  - Skin tightness [Unknown]
  - Skin burning sensation [Unknown]
